FAERS Safety Report 17426354 (Version 2)
Quarter: 2020Q1

REPORT INFORMATION
  Report Type: Spontaneous
  Country: DE (occurrence: DE)
  Receive Date: 20200217
  Receipt Date: 20200323
  Transmission Date: 20200409
  Serious: Yes (Hospitalization, Other)
  Sender: FDA-Public Use
  Company Number: DE-SA-2020SA033506

PATIENT
  Age: 51 Year
  Sex: Female

DRUGS (8)
  1. VITAMIN D2 [Concomitant]
     Active Substance: ERGOCALCIFEROL
     Dosage: 2000 IU
     Route: 065
  2. EUTHYROX [Concomitant]
     Active Substance: LEVOTHYROXINE SODIUM
     Dosage: 100 UG, 1-0-0
  3. SUMATRIPTAN. [Concomitant]
     Active Substance: SUMATRIPTAN
     Dosage: 100 MG
     Route: 065
  4. LEMTRADA [Suspect]
     Active Substance: ALEMTUZUMAB
     Indication: MULTIPLE SCLEROSIS
     Dosage: UNK UNK, UNK
     Route: 041
     Dates: start: 201510
  5. LEMTRADA [Suspect]
     Active Substance: ALEMTUZUMAB
     Dosage: UNK UNK, UNK
     Route: 041
     Dates: start: 20160905, end: 20160907
  6. ASA [Concomitant]
     Active Substance: ASPIRIN
     Dosage: 160 MG 1-0-0, PAUSED
     Route: 065
  7. PANTOPRAZOLE [Concomitant]
     Active Substance: PANTOPRAZOLE
     Dosage: 40 MG, 1-0-0
     Route: 065
  8. MICTONORM [Concomitant]
     Active Substance: PROPIVERINE HYDROCHLORIDE
     Dosage: 30 MG
     Route: 065

REACTIONS (44)
  - Condition aggravated [Unknown]
  - Haemorrhage [Unknown]
  - Feeling hot [Unknown]
  - Night sweats [Unknown]
  - Nausea [Unknown]
  - Cholecystectomy [Unknown]
  - Post procedural haemorrhage [Unknown]
  - Hypokalaemia [Unknown]
  - Meningioma [Unknown]
  - Central nervous system lesion [Unknown]
  - Micturition disorder [Unknown]
  - Activated partial thromboplastin time prolonged [Unknown]
  - Coagulation factor VIII level decreased [Unknown]
  - Fluid retention [Unknown]
  - Tic [Unknown]
  - Von Willebrand^s factor antigen increased [Unknown]
  - Swelling [Unknown]
  - Haemoglobin decreased [Unknown]
  - Neck pain [Unknown]
  - Fatigue [Unknown]
  - Acquired haemophilia [Unknown]
  - Platelet aggregation [Unknown]
  - Constipation [Unknown]
  - Oedema peripheral [Unknown]
  - Urinary tract infection [Unknown]
  - Hemianaesthesia [Unknown]
  - Limb injury [Unknown]
  - Bowel movement irregularity [Unknown]
  - Leukocyturia [Unknown]
  - Proteinuria [Unknown]
  - Haematoma [Unknown]
  - Anaemia [Unknown]
  - Vaccination site haematoma [Unknown]
  - Blood lactate dehydrogenase increased [Unknown]
  - Paraesthesia [Unknown]
  - Tonsillectomy [Unknown]
  - Thyroiditis subacute [Unknown]
  - Peripheral swelling [Unknown]
  - Pain [Unknown]
  - Hypothyroidism [Unknown]
  - Injection site haemorrhage [Unknown]
  - Gingival bleeding [Unknown]
  - Product use issue [Unknown]
  - Hysterectomy [Unknown]

NARRATIVE: CASE EVENT DATE: 2015
